FAERS Safety Report 18641712 (Version 3)
Quarter: 2021Q1

REPORT INFORMATION
  Report Type: Report from Study
  Country: CO (occurrence: CO)
  Receive Date: 20201221
  Receipt Date: 20210303
  Transmission Date: 20210419
  Serious: Yes (Death, Hospitalization)
  Sender: FDA-Public Use
  Company Number: NVSC2020CO331359

PATIENT
  Age: 68 Year
  Sex: Female
  Weight: 89 kg

DRUGS (9)
  1. KISQALI [Suspect]
     Active Substance: RIBOCICLIB
     Dosage: 600 MG, QD
     Route: 048
  2. FEMARA [Suspect]
     Active Substance: LETROZOLE
     Dosage: 2.5 MG, QD
     Route: 048
  3. LOSARTAN. [Suspect]
     Active Substance: LOSARTAN
     Indication: HYPERTENSION
     Dosage: 50 MG, Q12H (STARTED 10 YEARS AGO)
     Route: 048
  4. KISQALI [Suspect]
     Active Substance: RIBOCICLIB
     Indication: BREAST CANCER METASTATIC
     Dosage: 600 MG, QD
     Route: 048
     Dates: start: 201809, end: 202011
  5. FEMARA [Suspect]
     Active Substance: LETROZOLE
     Indication: BREAST CANCER
     Dosage: 2.5 MG, QD
     Route: 048
     Dates: start: 201809, end: 202011
  6. AMLODIPINE [Concomitant]
     Active Substance: AMLODIPINE BESYLATE
     Indication: HYPERTENSION
     Dosage: 5 MG, Q12H (STARTED 10 YEARS AGO)
     Route: 048
  7. KISQALI [Suspect]
     Active Substance: RIBOCICLIB
     Dosage: 400 MG, QD
     Route: 065
     Dates: end: 20201110
  8. FEMARA [Suspect]
     Active Substance: LETROZOLE
     Dosage: 2.5 MG, QD
     Route: 048
     Dates: start: 2019, end: 20201110
  9. KISQALI [Suspect]
     Active Substance: RIBOCICLIB
     Dosage: 600 MG, QD
     Route: 048
     Dates: start: 2019

REACTIONS (16)
  - Pulmonary oedema [Recovered/Resolved]
  - Fluid retention [Recovered/Resolved]
  - Blood pressure decreased [Unknown]
  - Breast cancer metastatic [Fatal]
  - Metastases to lung [Unknown]
  - Pleural effusion [Unknown]
  - Malignant neoplasm progression [Fatal]
  - Blood pressure decreased [Recovered/Resolved]
  - Asthenia [Unknown]
  - Product prescribing error [Unknown]
  - Gait inability [Unknown]
  - General physical condition abnormal [Unknown]
  - Decreased appetite [Unknown]
  - Dyspnoea [Unknown]
  - Dyspnoea [Recovered/Resolved]
  - Fatigue [Recovered/Resolved]

NARRATIVE: CASE EVENT DATE: 202009
